FAERS Safety Report 5663847-X (Version None)
Quarter: 2008Q1

REPORT INFORMATION
  Report Type: 
  Country: None (occurrence: None)
  Receive Date: 20080311
  Receipt Date: 20080228
  Transmission Date: 20080703
  Serious: Yes (Life-Threatening, Hospitalization)
  Sender: FDA-Public Use
  Company Number: GXKR2008TW02121

PATIENT
  Age: 54 Year
  Sex: Female

DRUGS (2)
  1. PREDNISOLONE [Suspect]
     Indication: SYSTEMIC LUPUS ERYTHEMATOSUS
     Dosage: 30 MG, QD
  2. HYDROXYCHLOROQUINE SULFATE [Suspect]
     Indication: SYSTEMIC LUPUS ERYTHEMATOSUS
     Dosage: 200 MG, BID

REACTIONS (14)
  - ACUTE ABDOMEN [None]
  - ASCITES [None]
  - BACK PAIN [None]
  - COLD SWEAT [None]
  - CONSTIPATION [None]
  - ECCHYMOSIS [None]
  - HERPES ZOSTER [None]
  - HYPERTENSION [None]
  - HYPOVOLAEMIC SHOCK [None]
  - MYCOTIC ANEURYSM [None]
  - NEPHRECTOMY [None]
  - OEDEMA PERIPHERAL [None]
  - RETROPERITONEAL HAEMATOMA [None]
  - SALMONELLOSIS [None]
